FAERS Safety Report 7957673-6 (Version None)
Quarter: 2011Q4

REPORT INFORMATION
  Report Type: 
  Country: None (occurrence: None)
  Receive Date: 20111205
  Receipt Date: 20111122
  Transmission Date: 20120403
  Serious: Yes (Other)
  Sender: FDA-Public Use
  Company Number: PHFR2011GB04748

PATIENT
  Sex: Male

DRUGS (2)
  1. CLOZARIL [Suspect]
     Indication: PSYCHOTIC DISORDER
     Route: 048
     Dates: start: 20100908
  2. CLOZARIL [Suspect]
     Indication: PARKINSON'S DISEASE

REACTIONS (4)
  - ANAEMIA [None]
  - DECREASED APPETITE [None]
  - DISORIENTATION [None]
  - HAEMOGLOBIN DECREASED [None]
